FAERS Safety Report 10385351 (Version 1)
Quarter: 2014Q3

REPORT INFORMATION
  Report Type: Spontaneous
  Country: IT (occurrence: None)
  Receive Date: 20140808
  Receipt Date: 20140808
  Transmission Date: 20150326
  Serious: Yes (Hospitalization)
  Sender: FDA-Public Use
  Company Number: 7310296

PATIENT
  Age: 3 Year
  Sex: Female

DRUGS (1)
  1. EUTIROX [Suspect]
     Active Substance: LEVOTHYROXINE SODIUM
     Indication: ACCIDENTAL EXPOSURE TO PRODUCT BY CHILD
     Dosage: (4 DF,TOTAL)
     Route: 048
     Dates: start: 20140713, end: 20140713

REACTIONS (3)
  - Thyroxine increased [None]
  - Accidental exposure to product by child [None]
  - Tri-iodothyronine increased [None]

NARRATIVE: CASE EVENT DATE: 20140713
